FAERS Safety Report 15945125 (Version 1)
Quarter: 2019Q1

REPORT INFORMATION
  Report Type: Spontaneous
  Country: US (occurrence: US)
  Receive Date: 20190211
  Receipt Date: 20190211
  Transmission Date: 20190417
  Serious: Yes (Other)
  Sender: FDA-Public Use
  Company Number: US-SA-2019SA035867

PATIENT
  Age: 50 Year
  Sex: Female
  Weight: 136 kg

DRUGS (1)
  1. PRALUENT [Suspect]
     Active Substance: ALIROCUMAB
     Indication: TYPE IIA HYPERLIPIDAEMIA
     Dosage: 150 MG, QOW
     Route: 058

REACTIONS (5)
  - Product use issue [Unknown]
  - Gastrointestinal haemorrhage [Unknown]
  - Abdominal discomfort [Unknown]
  - Cervical polyp [Unknown]
  - Injection site pain [Unknown]

NARRATIVE: CASE EVENT DATE: 201812
